FAERS Safety Report 18625729 (Version 1)
Quarter: 2020Q4

REPORT INFORMATION
  Report Type: Report from Study
  Country: US (occurrence: US)
  Receive Date: 20201216
  Receipt Date: 20201216
  Transmission Date: 20210114
  Serious: Yes (Other)
  Sender: FDA-Public Use
  Company Number: US-BAUSCH-BL-2020-025764

PATIENT
  Age: 53 Year
  Sex: Female

DRUGS (2)
  1. TRIENTINE HYDROCHLORIDE. [Suspect]
     Active Substance: TRIENTINE HYDROCHLORIDE
     Dosage: 1 PILL IN THE AM, 1 PILL AT WORK, 1 IN THE EVENING
     Route: 065
     Dates: start: 20201107
  2. TRIENTINE HYDROCHLORIDE. [Suspect]
     Active Substance: TRIENTINE HYDROCHLORIDE
     Indication: HEPATO-LENTICULAR DEGENERATION
     Route: 065
     Dates: start: 2017, end: 2019

REACTIONS (8)
  - Hepatic cirrhosis [Not Recovered/Not Resolved]
  - Therapy interrupted [Unknown]
  - Muscle spasms [Unknown]
  - Weight decreased [Not Recovered/Not Resolved]
  - Inability to afford medication [Unknown]
  - Vomiting [Not Recovered/Not Resolved]
  - Ill-defined disorder [Not Recovered/Not Resolved]
  - Cough [Not Recovered/Not Resolved]

NARRATIVE: CASE EVENT DATE: 201911
